FAERS Safety Report 22013123 (Version 1)
Quarter: 2023Q1

REPORT INFORMATION
  Report Type: Spontaneous
  Country: IN (occurrence: IN)
  Receive Date: 20230220
  Receipt Date: 20230220
  Transmission Date: 20230418
  Serious: Yes (Other)
  Sender: FDA-Public Use
  Company Number: IN-FreseniusKabi-FK202302104

PATIENT
  Age: 56 Year
  Sex: Male

DRUGS (4)
  1. LEUCOVORIN [Suspect]
     Active Substance: LEUCOVORIN
     Indication: Rectal abscess
     Dosage: THIRD CYCLE
  2. OXALIPLATIN [Suspect]
     Active Substance: OXALIPLATIN
     Indication: Rectal abscess
     Dosage: THIRD CYCLE
  3. FLUOROURACIL [Suspect]
     Active Substance: FLUOROURACIL
     Indication: Rectal abscess
     Dosage: THIRD CYCLE
     Route: 042
  4. CAPECITABINE [Suspect]
     Active Substance: CAPECITABINE
     Indication: Rectal abscess

REACTIONS (2)
  - Toxic leukoencephalopathy [Recovered/Resolved]
  - Drug intolerance [Unknown]
